FAERS Safety Report 4546255-4 (Version None)
Quarter: 2005Q1

REPORT INFORMATION
  Report Type: 
  Country: None (occurrence: None)
  Receive Date: 20050103
  Receipt Date: 20041215
  Transmission Date: 20050727
  Serious: Yes (Other)
  Sender: FDA-Public Use
  Company Number: 702077

PATIENT
  Age: 54 Year
  Sex: Male
  Weight: 78.2 kg

DRUGS (2)
  1. AMEVIVE [Suspect]
     Indication: PSORIASIS
     Dosage: 15 MG;QW;IM
     Route: 030
     Dates: start: 20030514, end: 20030730
  2. REMICADE [Concomitant]

REACTIONS (5)
  - EPSTEIN-BARR VIRUS INFECTION [None]
  - LIVER FUNCTION TEST ABNORMAL [None]
  - MYCOSIS FUNGOIDES [None]
  - PSORIASIS [None]
  - T-CELL LYMPHOMA [None]
